FAERS Safety Report 12306568 (Version 2)
Quarter: 2016Q2

REPORT INFORMATION
  Report Type: Spontaneous
  Country: US (occurrence: US)
  Receive Date: 20160426
  Receipt Date: 20160505
  Transmission Date: 20160815
  Serious: Yes (Other)
  Sender: FDA-Public Use
  Company Number: US-MDT-ADR-2016-00742

PATIENT
  Age: 57 Year
  Sex: Male

DRUGS (3)
  1. LIORESAL [Suspect]
     Active Substance: BACLOFEN
     Dosage: 605 MCG/DAY
     Route: 037
  2. LIORESAL [Suspect]
     Active Substance: BACLOFEN
     Dosage: 660MCG/DAY
     Route: 037
     Dates: start: 201604
  3. LIORESAL [Suspect]
     Active Substance: BACLOFEN
     Dosage: 660MCG/DAY
     Route: 037
     Dates: end: 201604

REACTIONS (13)
  - Multiple sclerosis [Unknown]
  - Malaise [Unknown]
  - Hyperhidrosis [Unknown]
  - Fatigue [Unknown]
  - Pyrexia [Unknown]
  - Nausea [Unknown]
  - Dizziness [Unknown]
  - Vomiting [Unknown]
  - Hypotonia [Unknown]
  - Urinary tract infection [Recovered/Resolved]
  - Memory impairment [Unknown]
  - Aphasia [Unknown]
  - Muscle spasms [Unknown]

NARRATIVE: CASE EVENT DATE: 201603
